FAERS Safety Report 13814335 (Version 1)
Quarter: 2017Q3

REPORT INFORMATION
  Report Type: Spontaneous
  Country: US (occurrence: US)
  Receive Date: 20170728
  Receipt Date: 20170728
  Transmission Date: 20171127
  Serious: Yes (Hospitalization)
  Sender: FDA-Public Use
  Company Number: None

PATIENT
  Age: 31 Year
  Sex: Female
  Weight: 59.42 kg

DRUGS (1)
  1. LISINOPRIL. [Suspect]
     Active Substance: LISINOPRIL
     Indication: HYPERTENSION
     Route: 048
     Dates: start: 20170527, end: 20170724

REACTIONS (6)
  - Pancreatitis acute [None]
  - Vomiting [None]
  - Nausea [None]
  - Enlarged uvula [None]
  - Angioedema [None]
  - Pharyngeal oedema [None]

NARRATIVE: CASE EVENT DATE: 20170725
